FAERS Safety Report 8374554-7 (Version None)
Quarter: 2012Q2

REPORT INFORMATION
  Report Type: 
  Country: None (occurrence: None)
  Receive Date: 20120521
  Receipt Date: 20120508
  Transmission Date: 20120825
  Serious: Yes (Other)
  Sender: FDA-Public Use
  Company Number: CA-JNJFOC-20120508776

PATIENT
  Sex: Male
  Weight: 118 kg

DRUGS (2)
  1. REMICADE [Suspect]
     Indication: PRODUCT USED FOR UNKNOWN INDICATION
     Route: 042
     Dates: start: 20120418
  2. REMICADE [Suspect]
     Route: 042
     Dates: start: 20110101

REACTIONS (1)
  - PAIN [None]
